FAERS Safety Report 6900427-X (Version None)
Quarter: 2010Q3

REPORT INFORMATION
  Report Type: 
  Country: None (occurrence: None)
  Receive Date: 20100803
  Receipt Date: 20100730
  Transmission Date: 20110219
  Serious: Yes (Death, Hospitalization)
  Sender: FDA-Public Use
  Company Number: PHHY2010MX26682

PATIENT
  Sex: Female

DRUGS (1)
  1. FEMARA [Suspect]
     Indication: NEOPLASM MALIGNANT
     Dosage: 1 TABLET ( 2.5 MG ) PER DAY
     Route: 048
     Dates: start: 20040901

REACTIONS (5)
  - ENDOTRACHEAL INTUBATION [None]
  - MALIGNANT NEOPLASM PROGRESSION [None]
  - METASTASES TO TRACHEA [None]
  - PLEURAL EFFUSION [None]
  - RESPIRATORY ARREST [None]
